FAERS Safety Report 8001297-1 (Version None)
Quarter: 2011Q4

REPORT INFORMATION
  Report Type: 
  Country: None (occurrence: None)
  Receive Date: 20111219
  Receipt Date: 20111214
  Transmission Date: 20120403
  Serious: Yes (Hospitalization, Other)
  Sender: FDA-Public Use
  Company Number: 2011SP026445

PATIENT
  Age: 49 Year
  Sex: Female
  Weight: 78.4723 kg

DRUGS (5)
  1. NUVARING [Suspect]
     Indication: HORMONE THERAPY
     Dates: start: 20090709, end: 20090722
  2. FLUOCINONIDE [Concomitant]
  3. FISH OIL [Concomitant]
  4. PROVIGIL [Concomitant]
  5. MULTI-VITAMIN [Concomitant]

REACTIONS (11)
  - BASAL CELL CARCINOMA [None]
  - HYPOAESTHESIA [None]
  - PULMONARY EMBOLISM [None]
  - ARTHRALGIA [None]
  - CARPAL TUNNEL SYNDROME [None]
  - ANGINA PECTORIS [None]
  - PNEUMONIA [None]
  - EPICONDYLITIS [None]
  - JOINT INJURY [None]
  - HYPERCOAGULATION [None]
  - PARAESTHESIA [None]
